FAERS Safety Report 6663223-7 (Version None)
Quarter: 2010Q2

REPORT INFORMATION
  Report Type: 
  Country: None (occurrence: None)
  Receive Date: 20100401
  Receipt Date: 20100329
  Transmission Date: 20101027
  Serious: Yes (Death, Hospitalization)
  Sender: FDA-Public Use
  Company Number: PHHY2010JP16166

PATIENT
  Age: 36 Year
  Sex: Female

DRUGS (4)
  1. DICLOFENAC [Suspect]
     Route: 048
  2. LEVOFLOXACIN [Suspect]
     Route: 048
  3. TEPRENONE [Suspect]
  4. CARBOCISTEINE [Suspect]
     Route: 048

REACTIONS (19)
  - ACIDOSIS [None]
  - ACUTE RESPIRATORY DISTRESS SYNDROME [None]
  - ALANINE AMINOTRANSFERASE INCREASED [None]
  - ASPARTATE AMINOTRANSFERASE INCREASED [None]
  - BLOOD BILIRUBIN INCREASED [None]
  - CARDIO-RESPIRATORY ARREST [None]
  - CONVULSION [None]
  - DIARRHOEA [None]
  - HAEMODIALYSIS [None]
  - HEPATIC FUNCTION ABNORMAL [None]
  - HEPATITIS ACUTE [None]
  - HYPOXIA [None]
  - PO2 DECREASED [None]
  - RENAL FAILURE ACUTE [None]
  - SHOCK [None]
  - SKIN EROSION [None]
  - SKIN EXFOLIATION [None]
  - TOXIC EPIDERMAL NECROLYSIS [None]
  - VOMITING [None]
